FAERS Safety Report 25395287 (Version 1)
Quarter: 2025Q2

REPORT INFORMATION
  Report Type: Spontaneous
  Country: US (occurrence: US)
  Receive Date: 20250604
  Receipt Date: 20250604
  Transmission Date: 20250717
  Serious: Yes (Other)
  Sender: DAIICHI
  Company Number: US-DSJP-DS-2025-144729-US

PATIENT
  Age: 64 Year
  Sex: Male

DRUGS (2)
  1. DATROWAY [Suspect]
     Active Substance: DATOPOTAMAB DERUXTECAN-DLNK
     Indication: Breast cancer
     Route: 065
     Dates: start: 2025, end: 20250530
  2. DATROWAY [Suspect]
     Active Substance: DATOPOTAMAB DERUXTECAN-DLNK
     Route: 065

REACTIONS (3)
  - Cerebrovascular accident [Unknown]
  - Dyspnoea [Unknown]
  - Dysarthria [Unknown]
